FAERS Safety Report 15639805 (Version 3)
Quarter: 2018Q4

REPORT INFORMATION
  Report Type: Spontaneous
  Country: US (occurrence: US)
  Receive Date: 20181120
  Receipt Date: 20181126
  Transmission Date: 20190205
  Serious: Yes (Other)
  Sender: FDA-Public Use
  Company Number: PHEH2018US048249

PATIENT
  Sex: Female

DRUGS (1)
  1. BIMATOPROST. [Suspect]
     Active Substance: BIMATOPROST
     Indication: PRODUCT USED FOR UNKNOWN INDICATION
     Dosage: 5 ML, ONCE/SINGLE
     Route: 047

REACTIONS (6)
  - Ocular hyperaemia [Unknown]
  - Eye discharge [Unknown]
  - Eye pain [Unknown]
  - Eye pruritus [Recovered/Resolved]
  - Eyelid disorder [Unknown]
  - Foreign body in eye [Unknown]
